FAERS Safety Report 4883634-X (Version None)
Quarter: 2006Q1

REPORT INFORMATION
  Report Type: 
  Country: None (occurrence: None)
  Receive Date: 20060118
  Receipt Date: 20051021
  Transmission Date: 20060701
  Serious: Yes (Other)
  Sender: FDA-Public Use
  Company Number: PHRM2005FR02846

PATIENT
  Age: 50 Year
  Sex: Female
  Weight: 70 kg

DRUGS (5)
  1. FEMARA [Suspect]
     Indication: BREAST CANCER METASTATIC
     Dosage: 2.5 MG, QD
     Route: 048
     Dates: start: 20050501, end: 20051003
  2. LASILIX [Suspect]
     Dosage: 20 MG, QD
     Route: 048
  3. TENORMIN [Suspect]
     Dosage: 50 MG, QD
     Route: 048
  4. MINI-SINTROM [Suspect]
     Dosage: 1 MG, QD
     Route: 048
  5. HERCEPTIN [Suspect]
     Dosage: 420 MG EVERY THREE WEEKS

REACTIONS (5)
  - BREAST PROSTHESIS REMOVAL [None]
  - DERMATITIS CONTACT [None]
  - PRURITUS [None]
  - RASH VESICULAR [None]
  - SKIN NECROSIS [None]
